FAERS Safety Report 5921242-X (Version None)
Quarter: 2008Q4

REPORT INFORMATION
  Report Type: 
  Country: None (occurrence: None)
  Receive Date: 20081016
  Receipt Date: 20081009
  Transmission Date: 20090506
  Serious: Yes (Hospitalization, Other)
  Sender: FDA-Public Use
  Company Number: CH-ABBOTT-08P-151-0476360-00

PATIENT
  Age: 18 Year
  Sex: Female
  Weight: 60 kg

DRUGS (4)
  1. AKINETON [Suspect]
     Indication: DYSTONIA
     Dosage: 8-6-0 MG,  1 IN 2 DAYS
     Route: 048
     Dates: start: 20070101
  2. PREGABALIN [Suspect]
     Indication: DRUG USE FOR UNKNOWN INDICATION
     Route: 048
     Dates: start: 20080421, end: 20080428
  3. BACLOFEN [Suspect]
     Indication: DYSTONIA
     Dosage: 20-20-30MG,  1 IN 3 DAYS
     Route: 048
     Dates: start: 20070101
  4. ACETYLSALICYLIC ACID SRT [Concomitant]
     Indication: CEREBROVASCULAR DISORDER
     Route: 048
     Dates: start: 20050101

REACTIONS (2)
  - DRUG WITHDRAWAL CONVULSIONS [None]
  - STATUS EPILEPTICUS [None]
